FAERS Safety Report 4316637-4 (Version None)
Quarter: 2004Q1

REPORT INFORMATION
  Report Type: 
  Country: None (occurrence: None)
  Receive Date: 20040311
  Receipt Date: 20040226
  Transmission Date: 20041129
  Serious: Yes (Hospitalization)
  Sender: FDA-Public Use
  Company Number: HQWYE471602MAR04

PATIENT
  Age: 66 Year
  Sex: Male

DRUGS (16)
  1. VANCOLED [Suspect]
     Indication: GLYCOPEPTIDE ANTIBIOTIC RESISTANT ENTEROCOCCAL INFECTION
     Dosage: SEE IMAGE
     Route: 042
     Dates: start: 19970204, end: 19970204
  2. VANCOLED [Suspect]
     Indication: STAPHYLOCOCCAL INFECTION
     Dosage: SEE IMAGE
     Route: 042
     Dates: start: 19970204, end: 19970204
  3. VANCOLED [Suspect]
     Indication: URINARY TRACT INFECTION
     Dosage: SEE IMAGE
     Route: 042
     Dates: start: 19970204, end: 19970204
  4. VANCOLED [Suspect]
     Indication: GLYCOPEPTIDE ANTIBIOTIC RESISTANT ENTEROCOCCAL INFECTION
     Dosage: SEE IMAGE
     Route: 042
     Dates: start: 19970220, end: 19970318
  5. VANCOLED [Suspect]
     Indication: STAPHYLOCOCCAL INFECTION
     Dosage: SEE IMAGE
     Route: 042
     Dates: start: 19970220, end: 19970318
  6. VANCOLED [Suspect]
     Indication: URINARY TRACT INFECTION
     Dosage: SEE IMAGE
     Route: 042
     Dates: start: 19970220, end: 19970318
  7. VANCOLED [Suspect]
     Indication: GLYCOPEPTIDE ANTIBIOTIC RESISTANT ENTEROCOCCAL INFECTION
     Dosage: SEE IMAGE
     Route: 042
     Dates: start: 19970401, end: 19970401
  8. VANCOLED [Suspect]
     Indication: STAPHYLOCOCCAL INFECTION
     Dosage: SEE IMAGE
     Route: 042
     Dates: start: 19970401, end: 19970401
  9. VANCOLED [Suspect]
     Indication: URINARY TRACT INFECTION
     Dosage: SEE IMAGE
     Route: 042
     Dates: start: 19970401, end: 19970401
  10. VANCOLED [Suspect]
     Indication: GLYCOPEPTIDE ANTIBIOTIC RESISTANT ENTEROCOCCAL INFECTION
     Dosage: SEE IMAGE
     Route: 042
     Dates: start: 19970701, end: 19970701
  11. VANCOLED [Suspect]
     Indication: STAPHYLOCOCCAL INFECTION
     Dosage: SEE IMAGE
     Route: 042
     Dates: start: 19970701, end: 19970701
  12. VANCOLED [Suspect]
     Indication: URINARY TRACT INFECTION
     Dosage: SEE IMAGE
     Route: 042
     Dates: start: 19970701, end: 19970701
  13. VANCOLED [Suspect]
     Indication: GLYCOPEPTIDE ANTIBIOTIC RESISTANT ENTEROCOCCAL INFECTION
     Dosage: SEE IMAGE
     Route: 042
     Dates: start: 19970806, end: 19970902
  14. VANCOLED [Suspect]
     Indication: STAPHYLOCOCCAL INFECTION
     Dosage: SEE IMAGE
     Route: 042
     Dates: start: 19970806, end: 19970902
  15. VANCOLED [Suspect]
     Indication: URINARY TRACT INFECTION
     Dosage: SEE IMAGE
     Route: 042
     Dates: start: 19970806, end: 19970902
  16. DOXYCYCLINE [Concomitant]

REACTIONS (13)
  - CANDIDIASIS [None]
  - DIALYSIS [None]
  - DISEASE RECURRENCE [None]
  - DRUG RESISTANCE [None]
  - GLYCOPEPTIDE ANTIBIOTIC RESISTANT STAPHYLOCOCCAL AUREUS INFECTION [None]
  - KLEBSIELLA INFECTION [None]
  - OEDEMA PERIPHERAL [None]
  - PERITONEAL DIALYSIS [None]
  - PSEUDOMONAS INFECTION [None]
  - PULMONARY OEDEMA [None]
  - PYREXIA [None]
  - RENAL FAILURE ACUTE [None]
  - STAPHYLOCOCCAL INFECTION [None]
